FAERS Safety Report 23415470 (Version 1)
Quarter: 2024Q1

REPORT INFORMATION
  Report Type: Spontaneous
  Country: US (occurrence: US)
  Receive Date: 20240118
  Receipt Date: 20240118
  Transmission Date: 20240410
  Serious: No
  Sender: FDA-Public Use
  Company Number: US-OPELLA-2024OHG001600

PATIENT

DRUGS (1)
  1. ASPERCREME WITH LIDOCAINE XL [Suspect]
     Active Substance: LIDOCAINE

REACTIONS (2)
  - Drug ineffective [Unknown]
  - No adverse event [Unknown]
